FAERS Safety Report 8839177 (Version 1)
Quarter: 2012Q4

REPORT INFORMATION
  Report Type: 
  Country: JP (occurrence: JP)
  Receive Date: 20121015
  Receipt Date: 20121015
  Transmission Date: 20130627
  Serious: Yes (Hospitalization)
  Sender: FDA-Public Use
  Company Number: JP-ELI_LILLY_AND_COMPANY-JP201210002085

PATIENT
  Sex: Male

DRUGS (2)
  1. HUMALOG 25% LISPRO, 75% NPL [Suspect]
     Dosage: 8 IU, each morning
     Route: 058
     Dates: start: 200912
  2. HUMALOG 25% LISPRO, 75% NPL [Suspect]
     Dosage: 4 IU, each evening
     Route: 058
     Dates: start: 200912

REACTIONS (1)
  - Renal impairment [Unknown]
